FAERS Safety Report 6013516-1 (Version None)
Quarter: 2008Q4

REPORT INFORMATION
  Report Type: 
  Country: None (occurrence: None)
  Receive Date: 20081219
  Receipt Date: 20081210
  Transmission Date: 20090506
  Serious: Yes (Other)
  Sender: FDA-Public Use
  Company Number: PHHY2008AU31808

PATIENT
  Sex: Female

DRUGS (5)
  1. ZOMETA [Suspect]
  2. LIPITOR [Suspect]
  3. OMEPRAZOLE [Concomitant]
  4. BETALOC [Concomitant]
  5. AVAPRO [Concomitant]

REACTIONS (2)
  - ALANINE AMINOTRANSFERASE INCREASED [None]
  - GAMMA-GLUTAMYLTRANSFERASE INCREASED [None]
